FAERS Safety Report 8918826 (Version 1)
Quarter: 2012Q4

REPORT INFORMATION
  Report Type: Spontaneous
  Country: US (occurrence: None)
  Receive Date: 20121115
  Receipt Date: 20121115
  Transmission Date: 20130627
  Serious: Yes (Disabling, Other)
  Sender: FDA-Public Use
  Company Number: None

PATIENT
  Age: 42 Year
  Sex: Female
  Weight: 79.38 kg

DRUGS (2)
  1. DUONEB [Suspect]
     Indication: BRONCHITIS
     Dates: start: 20111207, end: 20111207
  2. DUONEB [Suspect]
     Indication: SHORTNESS OF BREATH
     Dates: start: 20111207, end: 20111207

REACTIONS (4)
  - Muscle spasms [None]
  - Impaired work ability [None]
  - Activities of daily living impaired [None]
  - Dyspnoea [None]
